FAERS Safety Report 6712918-5 (Version None)
Quarter: 2010Q2

REPORT INFORMATION
  Report Type: 
  Country: None (occurrence: None)
  Receive Date: 20100506
  Receipt Date: 20100426
  Transmission Date: 20101027
  Serious: Yes (Hospitalization)
  Sender: FDA-Public Use
  Company Number: US-SANOFI-AVENTIS-2010SA014605

PATIENT
  Age: 77 Year
  Sex: Female
  Weight: 88 kg

DRUGS (8)
  1. TAXOTERE [Suspect]
     Indication: BREAST CANCER
     Route: 041
     Dates: start: 20100131, end: 20100131
  2. CYTOXAN [Suspect]
     Route: 042
  3. INSULIN [Concomitant]
  4. GLYBURIDE [Concomitant]
  5. DIOVANE [Concomitant]
  6. VERAPAMIL [Concomitant]
  7. NOVOLOG [Concomitant]
     Dosage: 70/30
  8. LYRICA [Concomitant]

REACTIONS (6)
  - ASPARTATE AMINOTRANSFERASE INCREASED [None]
  - BLOOD LACTATE DEHYDROGENASE INCREASED [None]
  - DEHYDRATION [None]
  - DIARRHOEA [None]
  - HEPATIC ENZYME INCREASED [None]
  - PALMAR-PLANTAR ERYTHRODYSAESTHESIA SYNDROME [None]
